FAERS Safety Report 9034114 (Version 1)
Quarter: 2013Q1

REPORT INFORMATION
  Report Type: Spontaneous
  Country: US (occurrence: None)
  Receive Date: 20130116
  Receipt Date: 20130116
  Transmission Date: 20140127
  Serious: Yes (Other)
  Sender: FDA-Public Use
  Company Number: None

PATIENT
  Age: 64 Year
  Sex: Female

DRUGS (1)
  1. BUSPIRONE [Suspect]
     Indication: NERVOUS SYSTEM DISORDER
     Dates: start: 20121010, end: 20130110

REACTIONS (3)
  - Hypoaesthesia [None]
  - Asthenia [None]
  - Product substitution issue [None]
